FAERS Safety Report 8658062 (Version 2)
Quarter: 2012Q4

REPORT INFORMATION
  Report Type: 
  Country: BR (occurrence: BR)
  Receive Date: 20120710
  Receipt Date: 20120927
  Transmission Date: 20130627
  Serious: Yes (Other)
  Sender: FDA-Public Use
  Company Number: BR-PFIZER INC-2012128605

PATIENT
  Age: 72 Year
  Sex: Male
  Weight: 83 kg

DRUGS (5)
  1. SUTENT [Suspect]
     Indication: RENAL CELL CARCINOMA
     Dosage: 50 mg, 1x/day first cycle
     Route: 048
     Dates: start: 20120514, end: 2012
  2. SUTENT [Suspect]
     Indication: RENAL CANCER
  3. PLASIL [Concomitant]
     Dosage: UNK
  4. IMOSEC [Concomitant]
     Dosage: UNK, 1x/day
  5. OMEPRAZOL [Concomitant]
     Dosage: UNK

REACTIONS (16)
  - Drug-induced liver injury [Unknown]
  - Decreased appetite [Unknown]
  - Dysgeusia [Unknown]
  - Malaise [Unknown]
  - Retching [Unknown]
  - Vomiting [Unknown]
  - Sleep disorder [Unknown]
  - Swelling face [Unknown]
  - Swelling [Unknown]
  - Weight decreased [Unknown]
  - Diarrhoea [Unknown]
  - Yellow skin [Unknown]
  - Ocular icterus [Unknown]
  - Ear pain [Unknown]
  - Oropharyngeal pain [Unknown]
  - Dysphagia [Unknown]
